FAERS Safety Report 5313858-9 (Version None)
Quarter: 2007Q2

REPORT INFORMATION
  Report Type: 
  Country: None (occurrence: None)
  Receive Date: 20070501
  Receipt Date: 20070418
  Transmission Date: 20071010
  Serious: Yes (Other)
  Sender: FDA-Public Use
  Company Number: JP-GLAXOSMITHKLINE-B0468442A

PATIENT
  Age: 55 Year
  Sex: Male

DRUGS (6)
  1. MELPHALAN [Suspect]
     Indication: MULTIPLE MYELOMA
     Dosage: 4MGM2 UNKNOWN
     Route: 065
  2. CYCLOPHOSPHAMIDE [Suspect]
     Indication: MULTIPLE MYELOMA
     Dosage: 100MGM2 UNKNOWN
     Route: 065
  3. VINCRISTINE [Concomitant]
     Indication: MULTIPLE MYELOMA
     Dosage: 1Z UNKNOWN
     Route: 065
  4. ADRIAMYCIN PFS [Concomitant]
     Indication: MULTIPLE MYELOMA
     Dosage: 25MGM2 UNKNOWN
     Route: 065
  5. PREDNISOLONE [Concomitant]
     Dosage: 50MGM2 UNKNOWN
     Route: 065
  6. RANIMUSTINE [Concomitant]
     Dosage: 30MGM2 UNKNOWN
     Route: 065

REACTIONS (3)
  - ACUTE MYELOID LEUKAEMIA [None]
  - CHROMOSOME ABNORMALITY [None]
  - DRUG RESISTANCE [None]
